FAERS Safety Report 4657876-2 (Version None)
Quarter: 2005Q2

REPORT INFORMATION
  Report Type: 
  Country: None (occurrence: None)
  Receive Date: 20050427
  Receipt Date: 20040810
  Transmission Date: 20051028
  Serious: No
  Sender: FDA-Public Use
  Company Number: 04H-163-0270481-00

PATIENT
  Sex: Male

DRUGS (2)
  1. POTASSIUM CHLORIDE 40MEQ [Suspect]
     Dates: start: 20040601
  2. TPN [Concomitant]

REACTIONS (2)
  - BLOOD POTASSIUM ABNORMAL [None]
  - MEDICATION ERROR [None]
